FAERS Safety Report 19781892 (Version 3)
Quarter: 2021Q3

REPORT INFORMATION
  Report Type: Report from Study
  Country: US (occurrence: US)
  Receive Date: 20210902
  Receipt Date: 20210906
  Transmission Date: 20211014
  Serious: No
  Sender: FDA-Public Use
  Company Number: NVSC2021US197459

PATIENT
  Age: 76 Year
  Sex: Male

DRUGS (2)
  1. ENTRESTO [Suspect]
     Active Substance: SACUBITRIL\VALSARTAN
     Dosage: 1 DF, BID (24?26MG)
     Route: 065
     Dates: start: 20210827
  2. ENTRESTO [Suspect]
     Active Substance: SACUBITRIL\VALSARTAN
     Indication: PRODUCT USED FOR UNKNOWN INDICATION
     Dosage: 1 DF, BID (24?26MG)
     Route: 065
     Dates: start: 20210826

REACTIONS (4)
  - Dizziness [Recovering/Resolving]
  - Cough [Unknown]
  - Vision blurred [Unknown]
  - Hypotension [Unknown]

NARRATIVE: CASE EVENT DATE: 20210827
